FAERS Safety Report 6537947-6 (Version None)
Quarter: 2010Q1

REPORT INFORMATION
  Report Type: 
  Country: None (occurrence: None)
  Receive Date: 20100114
  Receipt Date: 20100106
  Transmission Date: 20100710
  Serious: Yes (Other)
  Sender: FDA-Public Use
  Company Number: JP-WYE-H12869610

PATIENT
  Age: 73 Year
  Sex: Male

DRUGS (1)
  1. AMIODARONE HCL [Suspect]
     Indication: VENTRICULAR FIBRILLATION
     Dosage: 100 MG TO 200 MG DAILY
     Route: 048
     Dates: start: 19940401, end: 20031201

REACTIONS (3)
  - COMPUTERISED TOMOGRAM THORAX ABNORMAL [None]
  - DRUG EFFECT DECREASED [None]
  - HYPERTHYROIDISM [None]
